FAERS Safety Report 7355763-2 (Version None)
Quarter: 2011Q1

REPORT INFORMATION
  Report Type: 
  Country: None (occurrence: None)
  Receive Date: 20110316
  Receipt Date: 20110310
  Transmission Date: 20110831
  Serious: Yes (Hospitalization)
  Sender: FDA-Public Use
  Company Number: US-MERCK-1102USA00395

PATIENT
  Age: 85 Year
  Sex: Male

DRUGS (18)
  1. CITALOPRAM [Concomitant]
     Route: 048
  2. LIDOCAINE [Concomitant]
     Route: 061
  3. METFORMIN HYDROCHLORIDE [Concomitant]
     Route: 048
  4. DICLOFENAC [Concomitant]
     Indication: OSTEOARTHRITIS
     Route: 061
  5. ACETAMINOPHEN AND HYDROCODONE BITARTRATE [Concomitant]
     Route: 065
  6. CODEINE AND GUAIFENESIN [Concomitant]
     Route: 048
  7. PRAMIPEXOLE DIHYDROCHLORIDE [Concomitant]
     Route: 048
  8. OMEPRAZOLE [Concomitant]
     Route: 048
  9. THEOPHYLLINE [Concomitant]
     Route: 048
  10. SIMVASTATIN [Concomitant]
     Route: 048
  11. DICLOFENAC [Concomitant]
     Indication: ARTHRALGIA
     Route: 061
  12. PRINIVIL [Suspect]
     Route: 048
  13. ONDANSETRON [Concomitant]
     Route: 065
  14. CHLORPROMAZINE HYDROCHLORIDE [Concomitant]
     Route: 048
  15. CHLORPROMAZINE HYDROCHLORIDE [Concomitant]
     Route: 048
  16. TIZANIDINE HYDROCHLORIDE [Suspect]
     Indication: BACK PAIN
     Route: 048
     Dates: end: 20090617
  17. ACETAMINOPHEN [Concomitant]
     Route: 065
  18. PROSCAR [Concomitant]
     Route: 048

REACTIONS (3)
  - HYPOTENSION [None]
  - BRADYCARDIA [None]
  - DRUG INTERACTION [None]
